FAERS Safety Report 15927567 (Version 3)
Quarter: 2020Q1

REPORT INFORMATION
  Report Type: Spontaneous
  Country: US (occurrence: US)
  Receive Date: 20190205
  Receipt Date: 20200129
  Transmission Date: 20200409
  Serious: No
  Sender: FDA-Public Use
  Company Number: US-ALLERGAN-1859829US

PATIENT
  Age: 47 Year
  Sex: Female

DRUGS (3)
  1. HUMIRA [Suspect]
     Active Substance: ADALIMUMAB
     Indication: ANKYLOSING SPONDYLITIS
     Dosage: 40 MG, Q2WEEKS
     Route: 058
     Dates: start: 201810, end: 201810
  2. HUMIRA [Suspect]
     Active Substance: ADALIMUMAB
     Dosage: 40 MG, Q2WEEKS
     Route: 058
     Dates: start: 20190208, end: 20190208
  3. BOTOX [Suspect]
     Active Substance: ONABOTULINUMTOXINA
     Indication: PRODUCT USED FOR UNKNOWN INDICATION
     Dosage: UNK, SINGLE
     Route: 030

REACTIONS (21)
  - Back pain [Not Recovered/Not Resolved]
  - Urticaria [Unknown]
  - Migraine [Unknown]
  - Decreased appetite [Recovered/Resolved]
  - Neck pain [Not Recovered/Not Resolved]
  - Diarrhoea [Recovered/Resolved]
  - Fibromyalgia [Unknown]
  - Influenza [Recovered/Resolved]
  - Injection site erythema [Recovered/Resolved]
  - Tenderness [Not Recovered/Not Resolved]
  - Injection site swelling [Unknown]
  - Headache [Not Recovered/Not Resolved]
  - Mobility decreased [Unknown]
  - Joint range of motion decreased [Unknown]
  - Arthralgia [Not Recovered/Not Resolved]
  - Aphthous ulcer [Unknown]
  - Loss of personal independence in daily activities [Unknown]
  - Musculoskeletal stiffness [Not Recovered/Not Resolved]
  - Pain in extremity [Not Recovered/Not Resolved]
  - Pruritus [Unknown]
  - Hypersensitivity [Unknown]

NARRATIVE: CASE EVENT DATE: 2018
